FAERS Safety Report 10301150 (Version 1)
Quarter: 2014Q3

REPORT INFORMATION
  Report Type: Report from Study
  Country: NL (occurrence: NL)
  Receive Date: 20140714
  Receipt Date: 20140714
  Transmission Date: 20150326
  Serious: Yes (Death)
  Sender: FDA-Public Use
  Company Number: NL-PFIZER INC-2014192070

PATIENT
  Age: 83 Year
  Sex: Male

DRUGS (12)
  1. TESTOSTERONE. [Concomitant]
     Active Substance: TESTOSTERONE
     Indication: BLOOD LUTEINISING HORMONE DECREASED
  2. CORTISONE ACETATE. [Concomitant]
     Active Substance: CORTISONE ACETATE
     Indication: ADRENOCORTICOTROPIC HORMONE DEFICIENCY
     Dosage: UNK
     Dates: start: 19950315
  3. LEVOTHYROXINE [Concomitant]
     Active Substance: LEVOTHYROXINE
     Indication: HYPOTHYROIDISM
     Dosage: UNK
     Dates: start: 20010202
  4. TESTOSTERONE. [Concomitant]
     Active Substance: TESTOSTERONE
     Indication: HYPOGONADISM MALE
     Dosage: UNK
     Dates: start: 19960701
  5. SOMATROPIN [Suspect]
     Active Substance: SOMATROPIN
     Indication: HYPOPITUITARISM
     Dosage: 0.2 MG, UNK
     Dates: start: 19990521
  6. CORTISOL [Concomitant]
     Active Substance: HYDROCORTISONE
     Indication: ADRENOCORTICOTROPIC HORMONE DEFICIENCY
     Dosage: UNK
     Dates: start: 20000317
  7. DEXAMETHASONE. [Concomitant]
     Active Substance: DEXAMETHASONE
     Indication: HERPES SIMPLEX
     Dosage: UNK
     Dates: start: 19980115
  8. QUINAGOLIDE [Concomitant]
     Active Substance: QUINAGOLIDE
     Indication: ENDOCRINE DISORDER
     Dosage: UNK
     Dates: start: 19950315
  9. TESTOSTERONE. [Concomitant]
     Active Substance: TESTOSTERONE
     Indication: BLOOD FOLLICLE STIMULATING HORMONE DECREASED
  10. ZOVIRAX ^BURROUGHS^ [Concomitant]
     Indication: HERPES SIMPLEX
     Dosage: UNK
     Dates: start: 19980115
  11. ASCAL [Concomitant]
     Active Substance: CARBASALATE
     Indication: CARDIAC DISORDER
     Dosage: UNK
     Dates: start: 19970515
  12. ATENOLOL. [Concomitant]
     Active Substance: ATENOLOL
     Indication: ESSENTIAL HYPERTENSION
     Dosage: UNK
     Dates: start: 20000315

REACTIONS (1)
  - Death [Fatal]
